FAERS Safety Report 8174841-1 (Version None)
Quarter: 2012Q1

REPORT INFORMATION
  Report Type: 
  Country: None (occurrence: None)
  Receive Date: 20120229
  Receipt Date: 20110112
  Transmission Date: 20120608
  Serious: No
  Sender: FDA-Public Use
  Company Number: US-GLAXOSMITHKLINE-A0905429A

PATIENT
  Age: 65 Year
  Sex: Female

DRUGS (2)
  1. VALTREX [Suspect]
     Indication: HERPES ZOSTER
     Dosage: 2CAPL THREE TIMES PER DAY
     Route: 048
     Dates: start: 20101205, end: 20101211
  2. FENTANYL-100 [Concomitant]

REACTIONS (2)
  - PRODUCT SOLUBILITY ABNORMAL [None]
  - VOMITING [None]
